FAERS Safety Report 20997637 (Version 2)
Quarter: 2022Q4

REPORT INFORMATION
  Report Type: Spontaneous
  Country: BR (occurrence: BR)
  Receive Date: 20220623
  Receipt Date: 20221212
  Transmission Date: 20230113
  Serious: Yes (Hospitalization)
  Sender: FDA-Public Use
  Company Number: BR-JNJFOC-20220635303

PATIENT
  Sex: Female

DRUGS (1)
  1. RYBREVANT [Suspect]
     Active Substance: AMIVANTAMAB-VMJW
     Indication: Product used for unknown indication
     Dosage: APPROXIMATELY 38 ML OF MEDICATION RECEIVED, OUT OF THE 250 ML PROVIDED
     Route: 042

REACTIONS (2)
  - Blood pressure increased [Unknown]
  - Acute pulmonary oedema [Unknown]
